FAERS Safety Report 5581368-X (Version None)
Quarter: 2008Q1

REPORT INFORMATION
  Report Type: 
  Country: None (occurrence: None)
  Receive Date: 20080104
  Receipt Date: 20071102
  Transmission Date: 20080703
  Serious: No
  Sender: FDA-Public Use
  Company Number: US-BAYER-US-2007-041703

PATIENT
  Age: 43 Year
  Sex: Female
  Weight: 93 kg

DRUGS (4)
  1. YAZ [Suspect]
     Indication: CONTRACEPTION
     Route: 048
     Dates: start: 20071021
  2. METFORMIN [Concomitant]
     Indication: DIABETES MELLITUS
  3. ADVAIR DISKUS 100/50 [Concomitant]
     Indication: ASTHMA
  4. ASPIRIN [Concomitant]

REACTIONS (1)
  - ACNE [None]
